FAERS Safety Report 6550366-1 (Version None)
Quarter: 2010Q1

REPORT INFORMATION
  Report Type: 
  Country: None (occurrence: None)
  Receive Date: 20100125
  Receipt Date: 20100115
  Transmission Date: 20100710
  Serious: Yes (Hospitalization)
  Sender: FDA-Public Use
  Company Number: GXKR2010US00838

PATIENT
  Age: 32 Year
  Sex: Female

DRUGS (18)
  1. CISPLATIN [Suspect]
     Indication: PERITONEAL MESOTHELIOMA MALIGNANT ADVANCED
     Dosage: 6 CYCLES
     Route: 065
  2. DEXAMETHASONE [Suspect]
     Dosage: 4 MG, BID STARTING THE DAY BEFORE CHEMOTHERAPEUTIC TREATMENT FOR 5 DAYS
     Route: 048
  3. DEXAMETHASONE [Suspect]
     Dosage: 8 MG, QD THIS REGIMEN WAS REPEATED EVERY 21 DAYS IN-LINE WITH CHEMOTHERAPY CYCLE
     Route: 048
  4. DEXAMETHASONE [Suspect]
     Dosage: ALSO RECEIVED AS NEEDED; SLOWLY EXPANDING TO 14 OUT OF 21 DAYS (SLOWLY TAPERED)
     Route: 048
  5. PEMETREXED [Concomitant]
     Indication: PERITONEAL MESOTHELIOMA MALIGNANT ADVANCED
     Dosage: 6 CYCLES
     Route: 065
  6. APREPITANT [Concomitant]
     Indication: NAUSEA
     Dosage: STARTING THE DAY BEFORE CHEMOTHERAPEUTIC TREATMENT FOR 5 DAYS
     Route: 065
  7. APREPITANT [Concomitant]
     Indication: VOMITING
  8. PALONOSETRON [Concomitant]
     Indication: NAUSEA
     Dosage: STARTING THE DAY BEFORE CHEMOTHERAPEUTIC TREATMENT FOR 5 DAYS
     Route: 065
  9. PALONOSETRON [Concomitant]
     Indication: VOMITING
  10. LORAZEPAM [Concomitant]
     Indication: NAUSEA
     Dosage: STARTING THE DAY BEFORE CHEMOTHERAPEUTIC TREATMENT FOR 5 DAYS
     Route: 065
  11. LORAZEPAM [Concomitant]
     Indication: VOMITING
  12. PROCHLORPERAZINE [Concomitant]
     Indication: NAUSEA
     Dosage: AS NEEDED
     Route: 065
  13. PROCHLORPERAZINE [Concomitant]
     Indication: VOMITING
  14. ONDANSETRON [Concomitant]
     Indication: NAUSEA
     Route: 065
  15. DIPHENHYDRAMINE [Concomitant]
     Indication: NAUSEA
     Route: 065
  16. DIPHENHYDRAMINE [Concomitant]
     Indication: VOMITING
  17. DRONABINOL [Concomitant]
     Indication: NAUSEA
     Route: 065
  18. DRONABINOL [Concomitant]
     Indication: VOMITING

REACTIONS (7)
  - COGNITIVE DISORDER [None]
  - CONVULSION [None]
  - DIZZINESS [None]
  - MEMORY IMPAIRMENT [None]
  - PERFORMANCE STATUS DECREASED [None]
  - REVERSIBLE POSTERIOR LEUKOENCEPHALOPATHY SYNDROME [None]
  - SPEECH DISORDER DEVELOPMENTAL [None]
